FAERS Safety Report 18184177 (Version 12)
Quarter: 2021Q3

REPORT INFORMATION
  Report Type: Spontaneous
  Country: GB (occurrence: GB)
  Receive Date: 20200824
  Receipt Date: 20210705
  Transmission Date: 20211014
  Serious: Yes (Other)
  Sender: FDA-Public Use
  Company Number: GB-AUROBINDO-AUR-APL-2020-040058

PATIENT
  Age: 88 Year
  Sex: Male

DRUGS (35)
  1. LEUPRORELIN [Suspect]
     Active Substance: LEUPROLIDE ACETATE
     Indication: PULMONARY EMBOLISM
     Dosage: UNK
     Route: 065
     Dates: start: 2018
  2. STATIN [Suspect]
     Active Substance: UNSPECIFIED INGREDIENT
     Indication: PRODUCT USED FOR UNKNOWN INDICATION
  3. ATORVASTATIN [Suspect]
     Active Substance: ATORVASTATIN
     Indication: PROSTATE CANCER
     Dosage: UNK
     Route: 065
  4. ATORVASTATIN [Suspect]
     Active Substance: ATORVASTATIN
     Indication: PULMONARY EMBOLISM
  5. LUPRON DEPOT [Suspect]
     Active Substance: LEUPROLIDE ACETATE
     Indication: PROSTATE CANCER
  6. STATIN [Suspect]
     Active Substance: UNSPECIFIED INGREDIENT
     Indication: PROSTATE CANCER
     Dosage: UNK
     Route: 065
  7. AMLODIPINE [Suspect]
     Active Substance: AMLODIPINE BESYLATE
     Indication: PROSTATE CANCER
     Dosage: UNK
     Route: 065
  8. NYSTATIN. [Suspect]
     Active Substance: NYSTATIN
     Indication: PROSTATE CANCER
  9. ALLOPURINOL. [Suspect]
     Active Substance: ALLOPURINOL
     Indication: PROSTATE CANCER
  10. EDOXABAN [Suspect]
     Active Substance: EDOXABAN TOSYLATE
     Indication: PRODUCT USED FOR UNKNOWN INDICATION
     Dosage: UNK
     Route: 065
  11. LUPRON DEPOT [Suspect]
     Active Substance: LEUPROLIDE ACETATE
     Indication: PROSTATE CANCER
     Dosage: UNK
     Route: 065
     Dates: start: 2018
  12. LUPRON DEPOT [Suspect]
     Active Substance: LEUPROLIDE ACETATE
     Indication: PULMONARY EMBOLISM
  13. ETOPOSIDE. [Concomitant]
     Active Substance: ETOPOSIDE
     Indication: PROSTATE CANCER
     Dosage: UNK
     Route: 065
     Dates: start: 201912
  14. ETOPOSIDE. [Concomitant]
     Active Substance: ETOPOSIDE
     Indication: CHEMOTHERAPY
  15. ALLOPURINOL. [Suspect]
     Active Substance: ALLOPURINOL
     Indication: PROSTATE CANCER
     Dosage: UNK
     Route: 065
  16. ATORVASTATIN [Suspect]
     Active Substance: ATORVASTATIN
     Indication: PROSTATE CANCER
  17. LISINOPRIL. [Suspect]
     Active Substance: LISINOPRIL
     Indication: PROSTATE CANCER
  18. EDOXABAN [Suspect]
     Active Substance: EDOXABAN TOSYLATE
     Indication: PULMONARY EMBOLISM
     Dosage: UNK
     Route: 065
  19. LEUPRORELIN [Suspect]
     Active Substance: LEUPROLIDE ACETATE
     Indication: PROSTATE CANCER
     Dosage: UNK
  20. NYSTATIN. [Suspect]
     Active Substance: NYSTATIN
     Indication: PROSTATE CANCER
     Dosage: UNKNOWN
     Route: 065
  21. NYSTATIN. [Suspect]
     Active Substance: NYSTATIN
     Indication: PULMONARY EMBOLISM
  22. LUPRON DEPOT [Suspect]
     Active Substance: LEUPROLIDE ACETATE
     Indication: PRODUCT USED FOR UNKNOWN INDICATION
  23. CARBOPLATIN. [Concomitant]
     Active Substance: CARBOPLATIN
     Indication: CHEMOTHERAPY
  24. AMLODIPINE [Suspect]
     Active Substance: AMLODIPINE BESYLATE
     Indication: PULMONARY EMBOLISM
     Dosage: UNK
     Route: 065
  25. LISINOPRIL. [Suspect]
     Active Substance: LISINOPRIL
     Indication: PULMONARY EMBOLISM
  26. AMLODIPINE [Suspect]
     Active Substance: AMLODIPINE BESYLATE
     Indication: PROSTATE CANCER
  27. LISINOPRIL. [Suspect]
     Active Substance: LISINOPRIL
     Indication: PRODUCT USED FOR UNKNOWN INDICATION
  28. STATIN [Suspect]
     Active Substance: UNSPECIFIED INGREDIENT
     Indication: PULMONARY EMBOLISM
  29. CARBOPLATIN. [Concomitant]
     Active Substance: CARBOPLATIN
     Indication: PROSTATE CANCER
     Dosage: UNK
     Route: 065
     Dates: start: 201912
  30. ALLOPURINOL. [Suspect]
     Active Substance: ALLOPURINOL
     Indication: PULMONARY EMBOLISM
  31. LISINOPRIL. [Suspect]
     Active Substance: LISINOPRIL
     Indication: PROSTATE CANCER
     Dosage: UNK
     Route: 065
  32. SIMVASTATIN FILM?COATED TABLET [Suspect]
     Active Substance: SIMVASTATIN
     Indication: PROSTATE CANCER
     Dosage: UNK
     Route: 065
  33. SIMVASTATIN FILM?COATED TABLET [Suspect]
     Active Substance: SIMVASTATIN
     Indication: PULMONARY EMBOLISM
  34. LEUPRORELIN [Suspect]
     Active Substance: LEUPROLIDE ACETATE
     Indication: PROSTATE CANCER
     Dosage: UNK
     Route: 065
  35. CARBOPLATIN;ETOPOSIDE [Concomitant]
     Indication: PROSTATE CANCER
     Dosage: UNK (4 CYCLES)
     Route: 065
     Dates: start: 201912

REACTIONS (10)
  - Lymphadenopathy [Unknown]
  - Blood urea abnormal [Unknown]
  - Pulmonary embolism [Unknown]
  - Pelvic mass [Unknown]
  - Prostate cancer recurrent [Unknown]
  - Blood electrolytes abnormal [Unknown]
  - Off label use [Unknown]
  - Malignant transformation [Unknown]
  - Hydronephrosis [Unknown]
  - Disease progression [Unknown]

NARRATIVE: CASE EVENT DATE: 201912
